FAERS Safety Report 14930936 (Version 2)
Quarter: 2018Q2

REPORT INFORMATION
  Report Type: Report from Study
  Country: US (occurrence: US)
  Receive Date: 20180524
  Receipt Date: 20180525
  Transmission Date: 20180711
  Serious: No
  Sender: FDA-Public Use
  Company Number: PHEH2018US019454

PATIENT

DRUGS (1)
  1. ILARIS [Suspect]
     Active Substance: CANAKINUMAB
     Indication: AUTOINFLAMMATORY DISEASE
     Dosage: 45 MG, Q4W
     Route: 058

REACTIONS (4)
  - Alopecia [Unknown]
  - Urinary incontinence [Unknown]
  - Rhinorrhoea [Unknown]
  - Hepatic enzyme increased [Unknown]
